FAERS Safety Report 6946775-9 (Version None)
Quarter: 2010Q3

REPORT INFORMATION
  Report Type: 
  Country: None (occurrence: None)
  Receive Date: 20100825
  Receipt Date: 20100819
  Transmission Date: 20110219
  Serious: Yes (Disabling)
  Sender: FDA-Public Use
  Company Number: 2010BN000046

PATIENT
  Age: 46 Year
  Sex: Male

DRUGS (3)
  1. MELPHALAN HYDROCHLORIDE [Suspect]
     Indication: MULTIPLE MYELOMA
  2. IDARUBICIN HCL [Concomitant]
  3. DEXAMETHASONE [Concomitant]

REACTIONS (1)
  - BRACHIAL PLEXOPATHY [None]
